FAERS Safety Report 23419866 (Version 2)
Quarter: 2024Q1

REPORT INFORMATION
  Report Type: Spontaneous
  Country: US (occurrence: US)
  Receive Date: 20240119
  Receipt Date: 20240125
  Transmission Date: 20240410
  Serious: Yes (Death)
  Sender: FDA-Public Use
  Company Number: US-BEH-2024167550

PATIENT
  Sex: Female

DRUGS (1)
  1. PRIVIGEN [Suspect]
     Active Substance: HUMAN IMMUNOGLOBULIN G
     Indication: Uterine cancer
     Dosage: 20 GRAM, QMT
     Route: 042
     Dates: start: 202310

REACTIONS (3)
  - Death [Fatal]
  - No adverse event [Unknown]
  - Product use in unapproved indication [Unknown]
